FAERS Safety Report 15948466 (Version 1)
Quarter: 2019Q1

REPORT INFORMATION
  Report Type: Spontaneous
  Country: CN (occurrence: CN)
  Receive Date: 20190212
  Receipt Date: 20190212
  Transmission Date: 20190417
  Serious: Yes (Life-Threatening, Hospitalization, Other)
  Sender: FDA-Public Use
  Company Number: CN-ACCORD-105861

PATIENT
  Age: 5 Year
  Sex: Female

DRUGS (1)
  1. TACROLIMUS. [Suspect]
     Active Substance: TACROLIMUS
     Indication: ACUTE GRAFT VERSUS HOST DISEASE IN SKIN

REACTIONS (5)
  - Tachycardia [Recovering/Resolving]
  - Drug level increased [Recovering/Resolving]
  - Thrombotic microangiopathy [Recovering/Resolving]
  - Cytomegalovirus infection [Recovering/Resolving]
  - Posterior reversible encephalopathy syndrome [Recovering/Resolving]
